FAERS Safety Report 15900743 (Version 2)
Quarter: 2019Q3

REPORT INFORMATION
  Report Type: Spontaneous
  Country: FR (occurrence: FR)
  Receive Date: 20190201
  Receipt Date: 20190809
  Transmission Date: 20191004
  Serious: Yes (Hospitalization)
  Sender: FDA-Public Use
  Company Number: FR-JNJFOC-20190134307

PATIENT
  Age: 42 Year
  Sex: Female
  Weight: 72 kg

DRUGS (2)
  1. SIMPONI [Suspect]
     Active Substance: GOLIMUMAB
     Indication: PSORIATIC ARTHROPATHY
     Route: 058
  2. BREXIN                             /00500404/ [Suspect]
     Active Substance: PIROXICAM BETADEX
     Indication: PSORIATIC ARTHROPATHY
     Route: 048

REACTIONS (1)
  - Cervicitis [Not Recovered/Not Resolved]

NARRATIVE: CASE EVENT DATE: 20181226
